FAERS Safety Report 15867093 (Version 3)
Quarter: 2019Q1

REPORT INFORMATION
  Report Type: Report from Study
  Country: SK (occurrence: SK)
  Receive Date: 20190125
  Receipt Date: 20190220
  Transmission Date: 20190417
  Serious: Yes (Hospitalization)
  Sender: FDA-Public Use
  Company Number: SK-BAYER-2019-013864

PATIENT
  Age: 64 Year
  Sex: Female
  Weight: 97 kg

DRUGS (15)
  1. ENELBIN [NAFTIDROFURYL OXALATE] [Concomitant]
     Indication: PERIPHERAL ISCHAEMIA
     Dosage: 400 MG, QD
     Route: 048
     Dates: start: 20161104
  2. ACETYLSALICYLIC ACID({=100 MG) [Suspect]
     Active Substance: ASPIRIN
     Indication: PERIPHERAL REVASCULARISATION
  3. PRAGIOLA [Concomitant]
     Indication: DIABETES MELLITUS
     Dosage: 225 MG, QD
     Route: 048
     Dates: start: 20170725
  4. HUMULIN L [Concomitant]
     Active Substance: INSULIN HUMAN
     Indication: DIABETES MELLITUS
     Dosage: 45 IU, QD
     Route: 058
     Dates: start: 2002
  5. CAVITON [Concomitant]
     Indication: ISCHAEMIC STROKE
     Dosage: 20 MG, QD
     Route: 048
     Dates: start: 20171106
  6. BLINDED RIVAROXABAN [Suspect]
     Active Substance: RIVAROXABAN
     Indication: PERIPHERAL ARTERIAL OCCLUSIVE DISEASE
  7. ACETYLSALICYLIC ACID({=100 MG) [Suspect]
     Active Substance: ASPIRIN
     Indication: THROMBOSIS PROPHYLAXIS
     Dosage: 100 MG, QD
     Route: 048
     Dates: start: 20170110, end: 20171030
  8. OMEPRAZOL [OMEPRAZOLE] [Concomitant]
     Indication: DYSPEPSIA
     Dosage: TOTAL DAILY DOSE 40 MG
     Route: 048
     Dates: start: 20180914
  9. CLOPIDOGREL [Concomitant]
     Active Substance: CLOPIDOGREL BISULFATE
     Indication: ISCHAEMIC STROKE
     Dosage: 75 MG, QD
     Route: 048
     Dates: start: 20171031, end: 20190115
  10. STADAPYRIN [Concomitant]
     Indication: ISCHAEMIC STROKE
     Dosage: 100 MG, QD
     Route: 048
     Dates: start: 20171031
  11. ACETYLSALICYLIC ACID({=100 MG) [Suspect]
     Active Substance: ASPIRIN
     Indication: PERIPHERAL ARTERIAL OCCLUSIVE DISEASE
  12. VALZAP HCT [Concomitant]
     Indication: HYPERTENSION
     Dosage: 185 MG, QD
     Route: 048
  13. FURSEMID [FUROSEMIDE] [Concomitant]
     Active Substance: FUROSEMIDE
     Indication: HYPERTENSION
     Dosage: TOTAL DAILY DOSE 40 MG
     Route: 048
     Dates: start: 20180918
  14. BLINDED RIVAROXABAN [Suspect]
     Active Substance: RIVAROXABAN
     Indication: THROMBOSIS PROPHYLAXIS
     Dosage: 2.5 MG, BID
     Route: 048
     Dates: start: 20170110, end: 20171030
  15. BLINDED RIVAROXABAN [Suspect]
     Active Substance: RIVAROXABAN
     Indication: PERIPHERAL REVASCULARISATION

REACTIONS (1)
  - Hypochromic anaemia [Not Recovered/Not Resolved]

NARRATIVE: CASE EVENT DATE: 20180914
